FAERS Safety Report 5687470-6 (Version None)
Quarter: 2008Q1

REPORT INFORMATION
  Report Type: 
  Country: None (occurrence: None)
  Receive Date: 20080328
  Receipt Date: 20070822
  Transmission Date: 20080703
  Serious: Yes (Other)
  Sender: FDA-Public Use
  Company Number: US-BAYER-US-2007-013449

PATIENT
  Age: 35 Year
  Sex: Female
  Weight: 93 kg

DRUGS (2)
  1. MIRENA [Suspect]
     Indication: CONTRACEPTION
     Route: 015
  2. MIRENA [Suspect]
     Route: 015
     Dates: start: 20070403, end: 20070403

REACTIONS (2)
  - IUCD COMPLICATION [None]
  - MEDICATION ERROR [None]
